FAERS Safety Report 15267001 (Version 1)
Quarter: 2018Q3

REPORT INFORMATION
  Report Type: Spontaneous
  Country: US (occurrence: US)
  Receive Date: 20180810
  Receipt Date: 20180810
  Transmission Date: 20181010
  Serious: No
  Sender: FDA-Public Use
  Company Number: US-009507513-1808USA004730

PATIENT
  Age: 64 Year
  Sex: Male

DRUGS (18)
  1. TORSEMIDE. [Concomitant]
     Active Substance: TORSEMIDE
  2. ASPIRIN. [Concomitant]
     Active Substance: ASPIRIN
  3. ATORVASTATIN [Concomitant]
     Active Substance: ATORVASTATIN
  4. OMEPRAZOLE. [Concomitant]
     Active Substance: OMEPRAZOLE
  5. DULOXETINE HYDROCHLORIDE. [Concomitant]
     Active Substance: DULOXETINE HYDROCHLORIDE
  6. LOSARTAN. [Concomitant]
     Active Substance: LOSARTAN
  7. DIGOXIN. [Concomitant]
     Active Substance: DIGOXIN
  8. OMEGA?3 MARINE TRIGLYCERIDES [Concomitant]
     Active Substance: FISH OIL
  9. METOPROLOL. [Concomitant]
     Active Substance: METOPROLOL
  10. WARFARIN [Concomitant]
     Active Substance: WARFARIN
  11. GABAPENTIN. [Concomitant]
     Active Substance: GABAPENTIN
  12. TAMSULOSIN HYDROCHLORIDE. [Concomitant]
     Active Substance: TAMSULOSIN HYDROCHLORIDE
  13. METFORMIN [Concomitant]
     Active Substance: METFORMIN HYDROCHLORIDE
  14. MAGNESIUM (UNSPECIFIED) [Concomitant]
     Active Substance: MAGNESIUM
  15. GLIMEPIRIDE. [Concomitant]
     Active Substance: GLIMEPIRIDE
  16. JANUVIA [Suspect]
     Active Substance: SITAGLIPTIN PHOSPHATE
     Indication: TYPE 2 DIABETES MELLITUS
     Dosage: 100 MG (1 TABLET), DAILY
     Route: 048
  17. LEVOTHYROXINE SODIUM. [Concomitant]
     Active Substance: LEVOTHYROXINE SODIUM
  18. POTASSIUM (UNSPECIFIED) [Concomitant]
     Active Substance: POTASSIUM

REACTIONS (1)
  - Blood glucose increased [Not Recovered/Not Resolved]

NARRATIVE: CASE EVENT DATE: 20180719
